FAERS Safety Report 8986019 (Version 3)
Quarter: 2013Q1

REPORT INFORMATION
  Report Type: Report from Study
  Country: JP (occurrence: JP)
  Receive Date: 20121226
  Receipt Date: 20130117
  Transmission Date: 20140127
  Serious: Yes (Other)
  Sender: FDA-Public Use
  Company Number: JP-ASTELLAS-2012JP011929

PATIENT
  Age: 80 Year
  Sex: Female

DRUGS (7)
  1. SOLIFENACIN [Suspect]
     Indication: HYPERTONIC BLADDER
     Dosage: 5 MG, UID/QD
     Route: 048
     Dates: start: 20120420
  2. MIRABEGRON [Suspect]
     Indication: HYPERTONIC BLADDER
     Dosage: 25 MG, UID/QD
     Route: 048
     Dates: start: 20121114
  3. MAGLAX [Concomitant]
     Indication: CONSTIPATION
     Dosage: 1000 MG, UNKNOWN/D
     Route: 048
     Dates: start: 20120420
  4. FRANDOL [Concomitant]
     Indication: ANGINA PECTORIS
     Dosage: 40 MG, UNKNOWN/D
     Route: 048
     Dates: start: 20030210
  5. URINORM [Concomitant]
     Indication: HYPERURICAEMIA
     Dosage: 50 MG, UNKNOWN/D
     Route: 048
     Dates: start: 20111024
  6. GASLON N [Concomitant]
     Indication: PROPHYLAXIS
     Dosage: 4 MG, UNKNOWN/D
     Route: 048
     Dates: start: 20120928, end: 20121015
  7. SELBEX [Concomitant]
     Indication: PROPHYLAXIS
     Dosage: 150 MG, UNKNOWN/D
     Route: 048
     Dates: start: 20121015

REACTIONS (3)
  - Blood urea increased [Recovering/Resolving]
  - Blood uric acid increased [Recovered/Resolved]
  - Blood creatine phosphokinase increased [Not Recovered/Not Resolved]
